FAERS Safety Report 9786996 (Version 1)
Quarter: 2013Q4

REPORT INFORMATION
  Report Type: Spontaneous
  Country: DE (occurrence: DE)
  Receive Date: 20131227
  Receipt Date: 20131227
  Transmission Date: 20140711
  Serious: Yes (Hospitalization)
  Sender: FDA-Public Use
  Company Number: GXKR2013DE003899

PATIENT
  Age: 51 Year
  Sex: Male

DRUGS (1)
  1. AMOXIHEXAL [Suspect]
     Indication: PULPITIS DENTAL
     Dosage: UNK UKN, UNK
     Route: 048
     Dates: start: 201312

REACTIONS (4)
  - Gastrointestinal pain [Unknown]
  - Chest pain [Unknown]
  - Jaundice [Unknown]
  - Vomiting [Unknown]
